FAERS Safety Report 25603115 (Version 1)
Quarter: 2025Q3

REPORT INFORMATION
  Report Type: Report from Study
  Country: US (occurrence: US)
  Receive Date: 20250724
  Receipt Date: 20250724
  Transmission Date: 20251021
  Serious: Yes (Other)
  Sender: AZURITY PHARMACEUTICALS
  Company Number: US-AZURITY PHARMACEUTICALS, INC.-AZR202507-002099

PATIENT
  Sex: Female

DRUGS (1)
  1. TRIPTODUR [Suspect]
     Active Substance: TRIPTORELIN
     Indication: Product used for unknown indication
     Route: 030
     Dates: start: 20240819

REACTIONS (1)
  - Surgery [Unknown]
